FAERS Safety Report 6891902-5 (Version None)
Quarter: 2010Q3

REPORT INFORMATION
  Report Type: 
  Country: None (occurrence: None)
  Receive Date: 20100731
  Receipt Date: 20080114
  Transmission Date: 20110219
  Serious: No
  Sender: FDA-Public Use
  Company Number: US-PFIZER INC-2007096273

PATIENT
  Sex: Female
  Weight: 82.55 kg

DRUGS (11)
  1. CAMPTOSAR [Suspect]
     Indication: COLON CANCER METASTATIC
     Dates: start: 20070416, end: 20071113
  2. CETUXIMAB [Concomitant]
  3. ARANESP [Concomitant]
  4. KYTRIL [Concomitant]
  5. BENADRYL [Concomitant]
  6. PREMPRO [Concomitant]
  7. CELEXA [Concomitant]
  8. POTASSIUM CHLORIDE [Concomitant]
  9. AMBIEN [Concomitant]
  10. MULTI-VITAMINS [Concomitant]
  11. PRILOSEC [Concomitant]

REACTIONS (1)
  - PYREXIA [None]
